FAERS Safety Report 10338238 (Version 1)
Quarter: 2014Q3

REPORT INFORMATION
  Report Type: Spontaneous
  Country: US (occurrence: US)
  Receive Date: 20140724
  Receipt Date: 20140724
  Transmission Date: 20150326
  Serious: Yes (Other)
  Sender: FDA-Public Use
  Company Number: US-PFIZER INC-2014202844

PATIENT
  Age: 89 Year
  Sex: Male

DRUGS (5)
  1. LYRICA [Suspect]
     Active Substance: PREGABALIN
     Indication: CHOKING
  2. BABY ASPIRIN [Concomitant]
     Active Substance: ASPIRIN
     Dosage: UNK
  3. OMEPRAZOLE. [Concomitant]
     Active Substance: OMEPRAZOLE
     Dosage: UNK
  4. LYRICA [Suspect]
     Active Substance: PREGABALIN
     Indication: PARKINSONISM
     Dosage: 75 MG, ONCE
     Route: 048
     Dates: start: 20140701, end: 20140701
  5. LYRICA [Suspect]
     Active Substance: PREGABALIN
     Indication: TRANSIENT ISCHAEMIC ATTACK

REACTIONS (8)
  - Disease progression [Unknown]
  - Lethargy [Unknown]
  - Choking [Unknown]
  - Transient ischaemic attack [Unknown]
  - Feeling drunk [Unknown]
  - Parkinsonism [Unknown]
  - Dissociation [Unknown]
  - Disorientation [Unknown]

NARRATIVE: CASE EVENT DATE: 20140701
